FAERS Safety Report 7943132-3 (Version None)
Quarter: 2011Q4

REPORT INFORMATION
  Report Type: 
  Country: None (occurrence: None)
  Receive Date: 20111128
  Receipt Date: 20111116
  Transmission Date: 20120403
  Serious: Yes (Other)
  Sender: FDA-Public Use
  Company Number: PHEH2011US04228

PATIENT
  Sex: Male

DRUGS (6)
  1. LAMICTAL [Concomitant]
     Dosage: UNK UKN, UNK
  2. TRAZODONE HCL [Concomitant]
     Dosage: UNK UKN, UNK
  3. AFINITOR [Suspect]
     Indication: ASTROCYTOMA, LOW GRADE
     Dosage: 30 MG, WEEK
     Route: 048
     Dates: start: 20110625
  4. ABILIFY [Concomitant]
  5. AFINITOR [Suspect]
     Dosage: 40 MG, WEEK
     Route: 048
  6. CLONIDINE [Concomitant]
     Dosage: UNK UKN, UNK

REACTIONS (3)
  - CONVULSION [None]
  - MALAISE [None]
  - AGGRESSION [None]
